FAERS Safety Report 5622049-3 (Version None)
Quarter: 2008Q1

REPORT INFORMATION
  Report Type: 
  Country: None (occurrence: None)
  Receive Date: 20080211
  Receipt Date: 20080130
  Transmission Date: 20080703
  Serious: Yes (Other)
  Sender: FDA-Public Use
  Company Number: US-ROCHE-493711

PATIENT
  Age: 26 Year
  Sex: Male
  Weight: 81.6 kg

DRUGS (8)
  1. ACCUTANE [Suspect]
     Indication: ACNE
     Dosage: DOSAGE REGIMEN REPORTED AS 60 MG/40 MG AM/PM.
     Route: 048
     Dates: start: 19990211, end: 19990311
  2. ACCUTANE [Suspect]
     Route: 048
     Dates: start: 19990312, end: 19990601
  3. ACCUTANE [Suspect]
     Dosage: REPORTED AS ACCUTANE 40MG QD X 5 DAYS
     Route: 048
     Dates: start: 19990710, end: 19990715
  4. MINOCIN [Concomitant]
  5. RETIN-A [Concomitant]
  6. PROPECIA [Concomitant]
  7. ROGAINE [Concomitant]
     Indication: ALOPECIA
  8. PREDNISONE TAB [Concomitant]

REACTIONS (21)
  - ACNE [None]
  - ANAEMIA [None]
  - ANXIETY [None]
  - CHEILITIS [None]
  - COLITIS [None]
  - COLITIS ULCERATIVE [None]
  - CROHN'S DISEASE [None]
  - DEPRESSION [None]
  - DERMATITIS [None]
  - DIARRHOEA INFECTIOUS [None]
  - EPISTAXIS [None]
  - GASTROOESOPHAGEAL REFLUX DISEASE [None]
  - GIARDIASIS [None]
  - INFLAMMATORY BOWEL DISEASE [None]
  - IRRITABLE BOWEL SYNDROME [None]
  - LACTOSE INTOLERANCE [None]
  - LIP DRY [None]
  - LYMPHADENOPATHY [None]
  - NASOPHARYNGITIS [None]
  - PROCTITIS [None]
  - WEIGHT DECREASED [None]
